FAERS Safety Report 21472788 (Version 7)
Quarter: 2022Q4

REPORT INFORMATION
  Report Type: Report from Study
  Country: GB (occurrence: GB)
  Receive Date: 20221018
  Receipt Date: 20221228
  Transmission Date: 20230113
  Serious: Yes (Congenital Anomaly, Other)
  Sender: FDA-Public Use
  Company Number: GB-MYLANLABS-2022M1113751

PATIENT
  Sex: Female
  Weight: 2.48 kg

DRUGS (12)
  1. EMTRICITABINE\TENOFOVIR DISOPROXIL [Suspect]
     Active Substance: EMTRICITABINE\TENOFOVIR DISOPROXIL
     Indication: HIV infection
     Dosage: 1 DOSAGE FORM, QD, 1 TAB/CAPS
     Route: 064
     Dates: start: 20210719
  2. EMTRICITABINE\TENOFOVIR DISOPROXIL [Suspect]
     Active Substance: EMTRICITABINE\TENOFOVIR DISOPROXIL
     Dosage: 1 DOSAGE FORM, QD
     Route: 064
     Dates: start: 20110719
  3. RITONAVIR [Suspect]
     Active Substance: RITONAVIR
     Indication: HIV infection
     Dosage: 100 MILLIGRAM, QD
     Route: 064
     Dates: start: 20211229
  4. REYATAZ [Suspect]
     Active Substance: ATAZANAVIR SULFATE
     Indication: HIV infection
     Dosage: 300 MILLIGRAM, QD
     Route: 064
     Dates: start: 20211229
  5. ISENTRESS [Suspect]
     Active Substance: RALTEGRAVIR POTASSIUM
     Indication: HIV infection
     Dosage: 800 MILLIGRAM, QD
     Route: 064
     Dates: start: 20210719, end: 20211228
  6. STRIBILD [Suspect]
     Active Substance: COBICISTAT\ELVITEGRAVIR\EMTRICITABINE\TENOFOVIR DISOPROXIL FUMARATE
     Indication: HIV infection
     Dosage: 1 DOSAGE FORM, QD, 1 TAB/CAPS
     Route: 064
     Dates: end: 20210718
  7. TIVICAY [Suspect]
     Active Substance: DOLUTEGRAVIR SODIUM
     Indication: HIV infection
     Dosage: 50 MILLIGRAM, QD
     Route: 064
     Dates: start: 20220125
  8. EMTRICITABINE\TENOFOVIR DISOPROXIL FUMARATE [Suspect]
     Active Substance: EMTRICITABINE\TENOFOVIR DISOPROXIL FUMARATE
     Indication: Product used for unknown indication
     Dosage: 1 DOSAGE FORM, QD (1 COURSES, EXPOSURE NO PRIOR TO CONCEPTION AND DURING FIRST TRIMESTER, ONGOING..)
     Route: 064
  9. DOLUTEGRAVIR [Suspect]
     Active Substance: DOLUTEGRAVIR
     Indication: Product used for unknown indication
     Dosage: 50 UNK, QD (TOTAL DAILY DOSE)
     Route: 064
  10. ATAZANAVIR [Suspect]
     Active Substance: ATAZANAVIR
     Indication: Product used for unknown indication
     Dosage: 300 UNK, QD (TOTAL DAILY DOSE)
     Route: 064
  11. RALTEGRAVIR [Suspect]
     Active Substance: RALTEGRAVIR
     Indication: Product used for unknown indication
     Dosage: 800 UNK, QD (TOTAL DAILY DOSE)
     Route: 064
     Dates: start: 20210719, end: 20211228
  12. ELVITEGRAVIR [Suspect]
     Active Substance: ELVITEGRAVIR
     Dosage: UNK
     Route: 065
     Dates: start: 20210718

REACTIONS (4)
  - Renal dysplasia [Not Recovered/Not Resolved]
  - Single functional kidney [Not Recovered/Not Resolved]
  - Renal aplasia [Unknown]
  - Foetal exposure during pregnancy [Recovered/Resolved]

NARRATIVE: CASE EVENT DATE: 20220221
